FAERS Safety Report 9788106 (Version 1)
Quarter: 2013Q4

REPORT INFORMATION
  Report Type: Spontaneous
  Country: US (occurrence: None)
  Receive Date: 20131227
  Receipt Date: 20131227
  Transmission Date: 20140711
  Serious: Yes (Hospitalization)
  Sender: FDA-Public Use
  Company Number: None

PATIENT
  Age: 60 Year
  Sex: Female
  Weight: 57 kg

DRUGS (14)
  1. COUMADIN [Suspect]
     Indication: DEEP VEIN THROMBOSIS
     Route: 048
  2. OXYCONTIN [Concomitant]
  3. ZOLOFT [Concomitant]
  4. SENOKOT [Concomitant]
  5. BUPROPION [Concomitant]
  6. REGLAN [Concomitant]
  7. KCL [Concomitant]
  8. OXYCODONE [Concomitant]
  9. PRILOSEC [Concomitant]
  10. ZOFRAN [Concomitant]
  11. MEGACE [Concomitant]
  12. LORAZEPAM [Concomitant]
  13. COLACE [Concomitant]
  14. ACYCLOVIR [Concomitant]

REACTIONS (2)
  - Subdural haemorrhage [None]
  - International normalised ratio increased [None]
